FAERS Safety Report 6017381-8 (Version None)
Quarter: 2008Q4

REPORT INFORMATION
  Report Type: 
  Country: None (occurrence: None)
  Receive Date: 20081223
  Receipt Date: 20081212
  Transmission Date: 20090506
  Serious: Yes (Other)
  Sender: FDA-Public Use
  Company Number: PHHY2008DE31890

PATIENT
  Sex: Female

DRUGS (1)
  1. SALAGEN [Suspect]
     Indication: SJOGREN'S SYNDROME
     Dosage: 5 MG, TID
     Route: 048
     Dates: start: 20081101, end: 20081130

REACTIONS (2)
  - FALL [None]
  - VERTIGO POSITIONAL [None]
